FAERS Safety Report 10978141 (Version 3)
Quarter: 2015Q2

REPORT INFORMATION
  Report Type: Spontaneous
  Country: JP (occurrence: None)
  Receive Date: 20150331
  Receipt Date: 20150619
  Transmission Date: 20150821
  Serious: Yes (Hospitalization, Other)
  Sender: FDA-Public Use
  Company Number: 2015-10938

PATIENT
  Age: 74 Year
  Sex: Male
  Weight: 82 kg

DRUGS (16)
  1. BRONUCK (BROMFENAC SODIUM) [Concomitant]
  2. VOLTAREN (DICLOFENAC) [Concomitant]
  3. CARDENALIN (DOXAZOSIN MESILATE) [Concomitant]
  4. ANPLAG (SARPOGRELATE HYDROCHLORIDE) [Concomitant]
  5. METFORMIN HYDROCHLORIDE. [Concomitant]
     Active Substance: METFORMIN HYDROCHLORIDE
  6. CYMBALTA [Concomitant]
     Active Substance: DULOXETINE HYDROCHLORIDE
  7. ADALAT CR (NIFEDIPINE) [Concomitant]
  8. EYLEA [Suspect]
     Active Substance: AFLIBERCEPT
     Indication: AGE-RELATED MACULAR DEGENERATION
     Dosage: 2 MG, ONCE, OD, INTRAOCULAR
     Route: 031
     Dates: start: 20130219, end: 20130219
  9. OMEPRAL (OMEPRAZOLE) [Concomitant]
     Active Substance: OMEPRAZOLE
  10. NOVORAPID [Concomitant]
     Active Substance: INSULIN ASPART
  11. BAYASPIRIN (ACETYLSALICYLIC ACID) [Concomitant]
  12. MICARDIS [Concomitant]
     Active Substance: TELMISARTAN
  13. JANUVIA [Concomitant]
     Active Substance: SITAGLIPTIN PHOSPHATE
  14. MOHRUS YUTOKU (KETOPROFEN) [Concomitant]
  15. MEVALOTIN (PRAVASTATIN SODIUM) [Concomitant]
     Active Substance: PRAVASTATIN SODIUM
  16. MYCOSPOR (BIFONAZOLE) [Concomitant]

REACTIONS (5)
  - Intraocular pressure increased [None]
  - Ocular ischaemic syndrome [None]
  - Visual acuity reduced [None]
  - Glaucoma [None]
  - Retinal vein occlusion [None]

NARRATIVE: CASE EVENT DATE: 20150306
